FAERS Safety Report 7006081-3 (Version None)
Quarter: 2010Q3

REPORT INFORMATION
  Report Type: 
  Country: None (occurrence: None)
  Receive Date: 20100921
  Receipt Date: 20100909
  Transmission Date: 20110219
  Serious: Yes (Hospitalization)
  Sender: FDA-Public Use
  Company Number: FR-PFIZER INC-2010113903

PATIENT
  Age: 67 Year
  Sex: Male

DRUGS (1)
  1. ZITHROMAX [Suspect]
     Indication: RESPIRATORY TRACT INFECTION
     Dosage: 2 DF, 1X/DAY
     Route: 048
     Dates: start: 20100726, end: 20100727

REACTIONS (3)
  - CYTOLYTIC HEPATITIS [None]
  - RASH MACULO-PAPULAR [None]
  - THROMBOCYTOPENIA [None]
